FAERS Safety Report 14494547 (Version 1)
Quarter: 2018Q1

REPORT INFORMATION
  Report Type: Report from Study
  Country: US (occurrence: US)
  Receive Date: 20180206
  Receipt Date: 20180206
  Transmission Date: 20180509
  Serious: Yes (Hospitalization, Other)
  Sender: FDA-Public Use
  Company Number: US-BAYER-2017-239840

PATIENT
  Age: 71 Year
  Sex: Female

DRUGS (1)
  1. BETASERON [Suspect]
     Active Substance: INTERFERON BETA-1B
     Indication: MULTIPLE SCLEROSIS
     Dosage: 0.3 MG, QOD
     Route: 058
     Dates: start: 20150521

REACTIONS (5)
  - Hospitalisation [None]
  - Infected skin ulcer [None]
  - Speech disorder [None]
  - Seizure [None]
  - Swelling [None]

NARRATIVE: CASE EVENT DATE: 20171207
